FAERS Safety Report 6455978-1 (Version None)
Quarter: 2009Q4

REPORT INFORMATION
  Report Type: 
  Country: None (occurrence: None)
  Receive Date: 20091125
  Receipt Date: 20091124
  Transmission Date: 20100525
  Serious: Yes (Other)
  Sender: FDA-Public Use
  Company Number: US-EISAI INC.-E2090-00837-SPO-US

PATIENT
  Age: 7 Year
  Sex: Female

DRUGS (1)
  1. ZONEGRAN [Suspect]
     Route: 048
     Dates: end: 20090901

REACTIONS (1)
  - LACTIC ACIDOSIS [None]
